FAERS Safety Report 10309153 (Version 1)
Quarter: 2014Q3

REPORT INFORMATION
  Report Type: Spontaneous
  Country: CA (occurrence: CA)
  Receive Date: 20140716
  Receipt Date: 20140716
  Transmission Date: 20150326
  Serious: Yes (Other)
  Sender: FDA-Public Use
  Company Number: CA-GE HEALTHCARE MEDICAL DIAGNOSTICS-OMPQ-PR-1407S-0724

PATIENT
  Age: 48 Year
  Sex: Female
  Weight: 72.64 kg

DRUGS (8)
  1. NORVASC [Concomitant]
     Active Substance: AMLODIPINE BESYLATE
  2. OMNIPAQUE [Suspect]
     Active Substance: IOHEXOL
     Indication: HYPERTENSION
     Route: 042
     Dates: start: 20140707, end: 20140707
  3. RAMIPRIL. [Concomitant]
     Active Substance: RAMIPRIL
  4. ANEMIA SUPPLEMENT [Concomitant]
     Indication: ANAEMIA
  5. NASONEX [Concomitant]
     Active Substance: MOMETASONE FUROATE
  6. ALTACE [Concomitant]
     Active Substance: RAMIPRIL
  7. OMNIPAQUE [Suspect]
     Active Substance: IOHEXOL
     Indication: DIAGNOSTIC PROCEDURE
  8. GRAPE SEED EXTRACT [Concomitant]
     Active Substance: GRAPE SEED EXTRACT

REACTIONS (2)
  - Sneezing [Recovered/Resolved]
  - Nasal congestion [Recovered/Resolved]

NARRATIVE: CASE EVENT DATE: 20140707
